FAERS Safety Report 5019868-3 (Version None)
Quarter: 2006Q2

REPORT INFORMATION
  Report Type: 
  Country: None (occurrence: None)
  Receive Date: 20060605
  Receipt Date: 20060605
  Transmission Date: 20061013
  Serious: Yes (Life-Threatening, Hospitalization)
  Sender: FDA-Public Use
  Company Number: None

PATIENT
  Age: 34 Year
  Sex: Male
  Weight: 108.8633 kg

DRUGS (1)
  1. ELIDEL [Suspect]
     Indication: PSORIASIS
     Dosage: APPLIED TO ENTIRE FACE  1X TO 2X PER MONTH TOP
     Route: 061
     Dates: start: 20021001, end: 20060531

REACTIONS (1)
  - RENAL CELL CARCINOMA STAGE UNSPECIFIED [None]
